FAERS Safety Report 8363030-3 (Version None)
Quarter: 2012Q2

REPORT INFORMATION
  Report Type: 
  Country: None (occurrence: None)
  Receive Date: 20120514
  Receipt Date: 20120510
  Transmission Date: 20120825
  Serious: Yes (Hospitalization, Other)
  Sender: FDA-Public Use
  Company Number: ADR-2011-11747

PATIENT
  Sex: Male

DRUGS (2)
  1. BACLOFEN [Suspect]
     Indication: PAIN
     Route: 037
  2. BACLOFEN [Suspect]
     Indication: POST LAMINECTOMY SYNDROME
     Route: 037

REACTIONS (8)
  - LUNG NEOPLASM [None]
  - RESTLESS LEGS SYNDROME [None]
  - BREAKTHROUGH PAIN [None]
  - ROTATOR CUFF SYNDROME [None]
  - SCIATICA [None]
  - INADEQUATE ANALGESIA [None]
  - OEDEMA PERIPHERAL [None]
  - PLEURISY [None]
